FAERS Safety Report 6818653-7 (Version None)
Quarter: 2010Q3

REPORT INFORMATION
  Report Type: 
  Country: None (occurrence: None)
  Receive Date: 20100706
  Receipt Date: 20090112
  Transmission Date: 20110219
  Serious: Yes (Hospitalization, Other)
  Sender: FDA-Public Use
  Company Number: US-PFIZER INC-2009154846

PATIENT
  Sex: Female

DRUGS (8)
  1. ZITHROMAX [Suspect]
     Indication: CONJUNCTIVITIS BACTERIAL
     Dosage: 250 MG, 1X/DAY
     Route: 048
     Dates: start: 20070209
  2. GENTAMICIN [Concomitant]
     Indication: INFECTION
     Dosage: 3 MG/ML
     Route: 031
     Dates: start: 20070209
  3. WELLBUTRIN [Concomitant]
     Dosage: UNK
     Dates: start: 20070209
  4. LORTAB [Concomitant]
     Indication: PAIN
     Dosage: 5 MG
     Dates: start: 20070210
  5. MOXIFLOXACIN HYDROCHLORIDE [Concomitant]
     Indication: INFECTION
     Dosage: UNK
     Route: 031
     Dates: start: 20070210
  6. OMNICEF [Concomitant]
     Indication: INFECTION
     Dosage: 300 MG, 2X/DAY
     Route: 048
     Dates: start: 20070210
  7. ATENOLOL [Concomitant]
     Dosage: UNK
     Route: 048
     Dates: start: 20070210
  8. DRUG, UNSPECIFIED [Concomitant]
     Dosage: UNK
     Dates: start: 20070210

REACTIONS (1)
  - STEVENS-JOHNSON SYNDROME [None]
